FAERS Safety Report 5694045-1 (Version None)
Quarter: 2008Q2

REPORT INFORMATION
  Report Type: 
  Country: None (occurrence: None)
  Receive Date: 20080403
  Receipt Date: 20080327
  Transmission Date: 20081010
  Serious: Yes (Death, Life-Threatening)
  Sender: FDA-Public Use
  Company Number: CA-MERCK-0803CAN00111

PATIENT
  Age: 40 Year
  Sex: Male

DRUGS (2)
  1. ZETIA [Suspect]
     Indication: TYPE IIA HYPERLIPIDAEMIA
     Route: 048
  2. LIPITOR [Concomitant]
     Indication: TYPE IIA HYPERLIPIDAEMIA
     Route: 065

REACTIONS (1)
  - MYOCARDIAL INFARCTION [None]
